FAERS Safety Report 9768533 (Version 2)
Quarter: 2014Q1

REPORT INFORMATION
  Report Type: Spontaneous
  Country: US (occurrence: US)
  Receive Date: 20131217
  Receipt Date: 20140203
  Transmission Date: 20141002
  Serious: No
  Sender: FDA-Public Use
  Company Number: US-009507513-1312USA005910

PATIENT
  Age: 34 Year
  Sex: Female
  Weight: 47.62 kg

DRUGS (1)
  1. NEXPLANON [Suspect]
     Indication: CONTRACEPTION
     Dosage: ^STANDARD^
     Route: 059
     Dates: start: 20131205, end: 20131206

REACTIONS (2)
  - Hypersensitivity [Recovered/Resolved]
  - Nervousness [Recovered/Resolved]
